FAERS Safety Report 8029883-3 (Version None)
Quarter: 2012Q1

REPORT INFORMATION
  Report Type: 
  Country: None (occurrence: None)
  Receive Date: 20120109
  Receipt Date: 20111227
  Transmission Date: 20120608
  Serious: Yes (Other)
  Sender: FDA-Public Use
  Company Number: US-JNJFOC-20111212358

PATIENT
  Sex: Male
  Weight: 52.5 kg

DRUGS (32)
  1. ANTIBIOTICS [Concomitant]
     Indication: INFLAMMATORY BOWEL DISEASE
  2. CHLORHEXIDINE GLUCONATE [Concomitant]
  3. ZYRTEC [Concomitant]
  4. COTRIM [Concomitant]
  5. FLUCONAZOLE [Concomitant]
  6. REMICADE [Suspect]
     Indication: INFLAMMATORY BOWEL DISEASE
     Route: 042
     Dates: start: 20051103, end: 20090429
  7. OXYCODONE HCL [Suspect]
     Indication: PRODUCT USED FOR UNKNOWN INDICATION
  8. PEPTAMEN [Concomitant]
     Dosage: HIGH CALORIE SUPPLEMENT
  9. CALCIUM CARBONATE [Concomitant]
  10. FLAGYL [Concomitant]
  11. LORAZEPAM [Concomitant]
  12. ALUMINUM HYDROXIDE [Suspect]
     Indication: PRODUCT USED FOR UNKNOWN INDICATION
  13. HUMIRA [Concomitant]
     Dates: start: 20090512, end: 20100331
  14. VANCOMYCIN [Concomitant]
  15. OMEPRAZOLE [Suspect]
     Indication: PRODUCT USED FOR UNKNOWN INDICATION
  16. CYTARABINE [Suspect]
     Indication: PRODUCT USED FOR UNKNOWN INDICATION
  17. ETOPOSIDE [Suspect]
     Indication: PRODUCT USED FOR UNKNOWN INDICATION
  18. CHOLECALCIFEROL [Concomitant]
  19. ATIVAN [Concomitant]
  20. BENADRYL [Concomitant]
  21. ZOSYN [Concomitant]
  22. ONDANSETRON [Concomitant]
  23. BACTRIM [Concomitant]
  24. PANTOPRAZOLE [Concomitant]
  25. SCOPOLAMINE [Concomitant]
  26. MUPIROCIN [Suspect]
     Indication: PRODUCT USED FOR UNKNOWN INDICATION
  27. RANITIDINE [Concomitant]
  28. CEFEPIME [Concomitant]
  29. DIPHENHYDRAMINE HCL [Suspect]
     Indication: PRODUCT USED FOR UNKNOWN INDICATION
  30. ZANTAC [Concomitant]
  31. GENTAMICIN [Concomitant]
  32. AMPHOJEL [Concomitant]

REACTIONS (4)
  - HAEMOGLOBIN DECREASED [None]
  - SYNCOPE [None]
  - GASTROINTESTINAL HAEMORRHAGE [None]
  - TACHYCARDIA [None]
